FAERS Safety Report 8364521-1 (Version None)
Quarter: 2012Q2

REPORT INFORMATION
  Report Type: 
  Country: None (occurrence: None)
  Receive Date: 20120516
  Receipt Date: 20120507
  Transmission Date: 20120825
  Serious: Yes (Other)
  Sender: FDA-Public Use
  Company Number: US-MERCK-1111USA02494

PATIENT
  Age: 57 Year
  Sex: Female

DRUGS (5)
  1. BONIVA [Suspect]
     Route: 048
     Dates: start: 20070907, end: 20080601
  2. ALENDRONATE SODIUM [Suspect]
     Route: 065
  3. FOSAMAX [Suspect]
     Route: 048
     Dates: start: 20070901
  4. FOSAMAX [Suspect]
     Route: 048
     Dates: start: 19980508, end: 20000531
  5. BONIVA [Suspect]
     Route: 048
     Dates: start: 20061201, end: 20070807

REACTIONS (25)
  - BRUXISM [None]
  - TOOTH DISORDER [None]
  - OSTEOPOROSIS [None]
  - BLOOD DISORDER [None]
  - TEMPOROMANDIBULAR JOINT SYNDROME [None]
  - EAR DISORDER [None]
  - GINGIVAL RECESSION [None]
  - TOOTH LOSS [None]
  - PERIODONTAL DISEASE [None]
  - HYPERTONIC BLADDER [None]
  - TRAUMATIC OCCLUSION [None]
  - OSTEONECROSIS OF JAW [None]
  - INCREASED TENDENCY TO BRUISE [None]
  - DEVICE BREAKAGE [None]
  - ANXIETY [None]
  - POOR PERSONAL HYGIENE [None]
  - DENTAL ALVEOLAR ANOMALY [None]
  - BONE LOSS [None]
  - HORMONE LEVEL ABNORMAL [None]
  - TOOTH CROWDING [None]
  - DENTAL CARIES [None]
  - GALLBLADDER DISORDER [None]
  - GLAUCOMA [None]
  - DEVICE FAILURE [None]
  - BLOOD CHOLESTEROL INCREASED [None]
